FAERS Safety Report 4451642-9 (Version None)
Quarter: 2004Q3

REPORT INFORMATION
  Report Type: 
  Country: None (occurrence: None)
  Receive Date: 20040915
  Receipt Date: 20040901
  Transmission Date: 20050211
  Serious: Yes (Life-Threatening, Hospitalization)
  Sender: FDA-Public Use
  Company Number: 04P-020-0259613-00

PATIENT
  Age: 33 Year
  Sex: Male

DRUGS (9)
  1. NORVIR [Suspect]
     Indication: HIV INFECTION
     Dosage: PER ORAL
     Route: 048
     Dates: start: 20031020, end: 20040419
  2. NORVIR [Suspect]
     Indication: HIV INFECTION
     Dosage: PER ORAL
     Route: 048
     Dates: start: 20040510
  3. TIPRANAVIR [Concomitant]
  4. DIDADOSINE (DIDANOSINE) [Concomitant]
  5. TENOFOVIR [Concomitant]
  6. LAMIVUDINE [Concomitant]
  7. EFAVIRENZ [Concomitant]
  8. BENZOFIBRATE [Concomitant]
  9. BACTRIM [Concomitant]

REACTIONS (3)
  - MITOCHONDRIAL TOXICITY [None]
  - PANCREATITIS [None]
  - URTICARIA [None]
